FAERS Safety Report 7822059-1 (Version None)
Quarter: 2011Q4

REPORT INFORMATION
  Report Type: 
  Country: None (occurrence: None)
  Receive Date: 20111018
  Receipt Date: 20111011
  Transmission Date: 20120403
  Serious: Yes (Other)
  Sender: FDA-Public Use
  Company Number: PHHY2011FR89452

PATIENT
  Sex: Male
  Weight: 56 kg

DRUGS (5)
  1. MORPHINE SULFATE [Concomitant]
     Indication: METASTASES TO BONE
     Dosage: 20 MG DAILY
     Dates: start: 20110801
  2. NEBIVOLOL HCL [Concomitant]
     Indication: HYPERTENSION
     Dosage: 5 MG DAILY
     Dates: start: 20110101
  3. EVEROLIMUS [Suspect]
     Indication: RENAL CANCER METASTATIC
     Dosage: 10 MG DAILY
     Route: 048
     Dates: start: 20110901, end: 20110915
  4. EVEROLIMUS [Suspect]
     Dosage: 5 MG DAILY
     Route: 048
     Dates: start: 20111001
  5. OXYCONTIN [Concomitant]
     Dosage: 50 MG
     Route: 048
     Dates: start: 20110506

REACTIONS (5)
  - THROMBOCYTOPENIA [None]
  - C-REACTIVE PROTEIN INCREASED [None]
  - ANAEMIA [None]
  - ASTHENIA [None]
  - DECREASED APPETITE [None]
